FAERS Safety Report 5797494-6 (Version None)
Quarter: 2008Q2

REPORT INFORMATION
  Report Type: 
  Country: None (occurrence: None)
  Receive Date: 20080630
  Receipt Date: 20080613
  Transmission Date: 20081010
  Serious: Yes (Other)
  Sender: FDA-Public Use
  Company Number: 8033359

PATIENT
  Age: 43 Year
  Sex: Female
  Weight: 52.3 kg

DRUGS (7)
  1. KEPPRA [Suspect]
     Indication: CONVULSION
     Dosage: 3/D PO
     Route: 048
     Dates: start: 20070601, end: 20080101
  2. KEPPRA [Suspect]
     Indication: CONVULSION
     Dosage: 1000 MG PO
     Route: 048
     Dates: start: 20080101, end: 20080515
  3. KEPPRA [Suspect]
     Indication: CONVULSION
     Dosage: 500 MG 3/D PO
     Route: 048
     Dates: start: 20080515
  4. KEFLEX [Suspect]
     Indication: INFECTION
     Dosage: 500 MG 4/D
     Dates: start: 20080401, end: 20080428
  5. ZONEGRAN [Concomitant]
  6. LAMICTAL [Concomitant]
  7. PENICILLIN [Concomitant]

REACTIONS (9)
  - BACTERIAL RHINITIS [None]
  - BLOODY DISCHARGE [None]
  - CONVULSION [None]
  - EPISTAXIS [None]
  - NASAL CONGESTION [None]
  - NASOPHARYNGITIS [None]
  - STAPHYLOCOCCAL INFECTION [None]
  - UPPER RESPIRATORY TRACT INFECTION [None]
  - URINARY TRACT INFECTION [None]
